FAERS Safety Report 14007764 (Version 2)
Quarter: 2018Q3

REPORT INFORMATION
  Report Type: Spontaneous
  Country: US (occurrence: US)
  Receive Date: 20170925
  Receipt Date: 20180720
  Transmission Date: 20181010
  Serious: Yes (Hospitalization)
  Sender: FDA-Public Use
  Company Number: US-LEXICON PHARMACEUTICALS, INC-17-1606-00875

PATIENT
  Sex: Female

DRUGS (4)
  1. TELOTRISTAT ETHYL [Suspect]
     Active Substance: TELOTRISTAT ETHYL
     Indication: CARCINOID TUMOUR
     Route: 048
     Dates: start: 201703
  2. TELOTRISTAT ETHYL [Suspect]
     Active Substance: TELOTRISTAT ETHYL
     Indication: CARCINOID SYNDROME
  3. SANDOSTATIN LAR DEPOT [Concomitant]
     Active Substance: OCTREOTIDE ACETATE
     Dates: start: 2010
  4. AFINITOR [Concomitant]
     Active Substance: EVEROLIMUS

REACTIONS (6)
  - Diarrhoea [Recovering/Resolving]
  - Nausea [Unknown]
  - Blood chromogranin A increased [Recovering/Resolving]
  - Abdominal distension [Recovering/Resolving]
  - Blood glucose increased [Unknown]
  - Carcinoid heart disease [Unknown]

NARRATIVE: CASE EVENT DATE: 2017
